FAERS Safety Report 6774358-2 (Version None)
Quarter: 2010Q2

REPORT INFORMATION
  Report Type: 
  Country: None (occurrence: None)
  Receive Date: 20100617
  Receipt Date: 20100517
  Transmission Date: 20101027
  Serious: No
  Sender: FDA-Public Use
  Company Number: US-JNJFOC-20100306050

PATIENT
  Sex: Male
  Weight: 105.24 kg

DRUGS (13)
  1. INVEGA SUSTENNA [Suspect]
     Indication: SCHIZOPHRENIA, PARANOID TYPE
     Route: 030
  2. PROPYLENE GLYCOL [Concomitant]
  3. TOCOPHEROL CONCENTRATE CAP [Concomitant]
     Route: 065
  4. BENZTROPINE MESYLATE [Concomitant]
     Route: 065
  5. SEROQUEL [Concomitant]
  6. HALDOL [Concomitant]
     Dosage: AS REQUIRED
  7. HALDOL [Concomitant]
  8. HALDOL [Concomitant]
  9. NEXIUM [Concomitant]
     Route: 065
  10. HYDROCHLOROTHIAZIDE [Concomitant]
     Route: 065
  11. MULTI-VITAMINS [Concomitant]
  12. ENALAPRIL MALEATE [Concomitant]
  13. LEVOTHYROXINE SODIUM [Concomitant]
     Route: 065

REACTIONS (1)
  - INAPPROPRIATE SCHEDULE OF DRUG ADMINISTRATION [None]
